FAERS Safety Report 25818912 (Version 1)
Quarter: 2025Q3

REPORT INFORMATION
  Report Type: Spontaneous
  Country: EU (occurrence: EU)
  Receive Date: 20250918
  Receipt Date: 20250918
  Transmission Date: 20251021
  Serious: Yes (Life-Threatening)
  Sender: ALEXION PHARMACEUTICALS
  Company Number: None

PATIENT
  Age: 73 Year
  Sex: Male
  Weight: 62 kg

DRUGS (2)
  1. DAPAGLIFLOZIN [Suspect]
     Active Substance: DAPAGLIFLOZIN
     Indication: Cardiac failure
     Dosage: 1X1
     Dates: start: 20230810, end: 20250825
  2. ATEZOLIZUMAB [Concomitant]
     Active Substance: ATEZOLIZUMAB

REACTIONS (6)
  - Renal impairment [Unknown]
  - Bezoar [Unknown]
  - Ascites [Unknown]
  - Hydronephrosis [Unknown]
  - Haematuria [Unknown]
  - Candida infection [Unknown]

NARRATIVE: CASE EVENT DATE: 20250101
